FAERS Safety Report 19325173 (Version 1)
Quarter: 2021Q2

REPORT INFORMATION
  Report Type: Spontaneous
  Country: US (occurrence: US)
  Receive Date: 20210528
  Receipt Date: 20210528
  Transmission Date: 20210717
  Serious: Yes (Other)
  Sender: FDA-Public Use
  Company Number: US-SUN PHARMACEUTICAL INDUSTRIES LTD-2021R1-298590

PATIENT
  Age: 59 Year
  Sex: Female

DRUGS (4)
  1. BUPRENORPHINE/NALOXONE [Suspect]
     Active Substance: BUPRENORPHINE\NALOXONE
     Dosage: 12 MG/3 MG, DAILY
     Route: 065
  2. BUPRENORPHINE/NALOXONE [Suspect]
     Active Substance: BUPRENORPHINE\NALOXONE
     Indication: DETOXIFICATION
     Dosage: 8 MG/2 MG FOLLOWED BY 2 MG/0.5 MG EVERY 2 HOURS
     Route: 065
  3. BUPRENORPHINE/NALOXONE [Suspect]
     Active Substance: BUPRENORPHINE\NALOXONE
     Dosage: 8 MG/2MG, BID
     Route: 065
  4. BUPRENORPHINE/NALOXONE [Suspect]
     Active Substance: BUPRENORPHINE\NALOXONE
     Dosage: 8 MG/2MG, TID
     Route: 065

REACTIONS (4)
  - Withdrawal syndrome [Unknown]
  - Nausea [Unknown]
  - Myalgia [Unknown]
  - Paraesthesia [Unknown]
